FAERS Safety Report 5817332-2 (Version None)
Quarter: 2008Q3

REPORT INFORMATION
  Report Type: 
  Country: None (occurrence: None)
  Receive Date: 20080722
  Receipt Date: 20080714
  Transmission Date: 20090109
  Serious: Yes (Hospitalization)
  Sender: FDA-Public Use
  Company Number: US-GILEAD-2008-0016928

PATIENT
  Sex: Female

DRUGS (6)
  1. LETAIRIS [Suspect]
     Indication: PULMONARY ARTERIAL HYPERTENSION
     Route: 048
  2. LETAIRIS [Suspect]
     Route: 048
     Dates: start: 20080501, end: 20080530
  3. ALDACTONE [Concomitant]
  4. LASIX [Concomitant]
  5. DIGOXIN [Concomitant]
  6. COUMADIN [Concomitant]

REACTIONS (2)
  - CENTRAL LINE INFECTION [None]
  - PALPITATIONS [None]
